FAERS Safety Report 17476239 (Version 1)
Quarter: 2020Q1

REPORT INFORMATION
  Report Type: Spontaneous
  Country: CH (occurrence: CH)
  Receive Date: 20200228
  Receipt Date: 20200228
  Transmission Date: 20200409
  Serious: Yes (Hospitalization)
  Sender: FDA-Public Use
  Company Number: CH-009507513-2002CHE010318

PATIENT
  Sex: Male
  Weight: 66 kg

DRUGS (13)
  1. MST CONTINUS [Suspect]
     Active Substance: MORPHINE SULFATE
     Dosage: 10 MILLIGRAM
  2. SPIRICORT [Concomitant]
     Active Substance: PREDNISOLONE
     Dosage: 5 MILLIGRAM
  3. BECOZYM [Concomitant]
     Active Substance: VITAMINS
     Dosage: UNK
  4. PREGABALIN. [Suspect]
     Active Substance: PREGABALIN
     Dosage: 75 MILLIGRAM
  5. PANTOPRAZOLE [Suspect]
     Active Substance: PANTOPRAZOLE
     Dosage: 20 MILLIGRAM
     Dates: end: 20200207
  6. DAFALGAN [Suspect]
     Active Substance: ACETAMINOPHEN
     Dosage: UP TO 4 G DAILY OVER SEVERAL WEEKS
  7. NOVALGIN (METAMIZOLE SODIUM) [Suspect]
     Active Substance: METAMIZOLE SODIUM
     Dosage: 500 MILLIGRAM
  8. IBUPROFEN. [Suspect]
     Active Substance: IBUPROFEN
     Dosage: 400 MILLIGRAM
  9. FOLIC ACID. [Concomitant]
     Active Substance: FOLIC ACID
     Dosage: 5 MILLIGRAM
  10. JANUVIA [Suspect]
     Active Substance: SITAGLIPTIN PHOSPHATE
     Dosage: 50 MILLIGRAM
  11. VITAMIN D3 WILD [Concomitant]
     Active Substance: CHOLECALCIFEROL
     Dosage: 1000 IU DAILY
  12. PIOGLITAZONE. [Suspect]
     Active Substance: PIOGLITAZONE
     Dosage: 30 MILLIGRAM
  13. METFORMIN [Concomitant]
     Active Substance: METFORMIN HYDROCHLORIDE
     Dosage: 1000 MG TWICE DAILY

REACTIONS (1)
  - Liver disorder [Not Recovered/Not Resolved]
